FAERS Safety Report 22100775 (Version 1)
Quarter: 2023Q1

REPORT INFORMATION
  Report Type: Other
  Country: FR (occurrence: FR)
  Receive Date: 20230316
  Receipt Date: 20230316
  Transmission Date: 20230418
  Serious: Yes (Hospitalization, Other)
  Sender: FDA-Public Use
  Company Number: FR-Bion-011331

PATIENT
  Age: 46 Year
  Sex: Female

DRUGS (2)
  1. NIMODIPINE [Suspect]
     Active Substance: NIMODIPINE
     Indication: Breast cancer
  2. IOBITRIDOL [Concomitant]
     Active Substance: IOBITRIDOL
     Indication: Breast cancer

REACTIONS (1)
  - Toxic epidermal necrolysis [Recovering/Resolving]
